FAERS Safety Report 7216014-2 (Version None)
Quarter: 2011Q1

REPORT INFORMATION
  Report Type: 
  Country: None (occurrence: None)
  Receive Date: 20110104
  Receipt Date: 20110104
  Transmission Date: 20110831
  Serious: No
  Sender: FDA-Public Use
  Company Number: None

PATIENT
  Age: 69 Year
  Sex: Female
  Weight: 40 kg

DRUGS (1)
  1. TYGACIL [Suspect]
     Indication: WOUND INFECTION
     Dosage: 50 MG EVERY 12 HOURS IV
     Route: 042
     Dates: start: 20101220, end: 20101229

REACTIONS (1)
  - RASH MACULAR [None]
